FAERS Safety Report 5218690-2 (Version None)
Quarter: 2007Q1

REPORT INFORMATION
  Report Type: 
  Country: None (occurrence: None)
  Receive Date: 20070122
  Receipt Date: 20070116
  Transmission Date: 20070707
  Serious: Yes (Death)
  Sender: FDA-Public Use
  Company Number: 2007SP000888

PATIENT
  Age: 65 Year
  Sex: Male

DRUGS (1)
  1. NOXAFIL [Suspect]
     Indication: MYELODYSPLASTIC SYNDROME
     Dosage: 200 MG; QID; PO
     Route: 048

REACTIONS (1)
  - DEATH [None]
